FAERS Safety Report 20133468 (Version 1)
Quarter: 2021Q4

REPORT INFORMATION
  Report Type: Spontaneous
  Country: US (occurrence: US)
  Receive Date: 20211201
  Receipt Date: 20211201
  Transmission Date: 20220303
  Serious: No
  Sender: FDA-Public Use
  Company Number: US-CHIESI-2021CHF03044

PATIENT
  Age: 20 Year
  Sex: Female

DRUGS (8)
  1. BETHKIS [Suspect]
     Active Substance: TOBRAMYCIN
     Indication: Respiratory failure
     Dosage: 300 MILLIGRAM, BID
     Route: 055
     Dates: start: 20191107
  2. BETHKIS [Suspect]
     Active Substance: TOBRAMYCIN
     Indication: Hypoxia
  3. BETHKIS [Suspect]
     Active Substance: TOBRAMYCIN
     Indication: Hypercapnia
  4. BETHKIS [Suspect]
     Active Substance: TOBRAMYCIN
     Indication: Atelectasis
  5. BETHKIS [Suspect]
     Active Substance: TOBRAMYCIN
     Indication: Pneumonia bacterial
  6. BETHKIS [Suspect]
     Active Substance: TOBRAMYCIN
     Indication: Anaemia
  7. BETHKIS [Suspect]
     Active Substance: TOBRAMYCIN
     Indication: Off label use
  8. CAYSTON [Concomitant]
     Active Substance: AZTREONAM
     Indication: Product used for unknown indication
     Dosage: UNK

REACTIONS (2)
  - Ill-defined disorder [Unknown]
  - Off label use [Not Recovered/Not Resolved]

NARRATIVE: CASE EVENT DATE: 20191107
